FAERS Safety Report 5925886-0 (Version None)
Quarter: 2008Q4

REPORT INFORMATION
  Report Type: 
  Country: None (occurrence: None)
  Receive Date: 20081021
  Receipt Date: 20081009
  Transmission Date: 20090506
  Serious: Yes (Hospitalization, Other)
  Sender: FDA-Public Use
  Company Number: US-PFIZER INC-2008076451

PATIENT
  Sex: Female
  Weight: 97.272 kg

DRUGS (14)
  1. CHANTIX [Suspect]
     Indication: SMOKING CESSATION THERAPY
     Route: 048
     Dates: start: 20080903, end: 20080101
  2. OXYGEN [Concomitant]
  3. NITROGLYCERIN [Concomitant]
  4. ACETYLSALICYLIC ACID SRT [Concomitant]
  5. LISINOPRIL [Concomitant]
  6. METFORMIN HYDROCHLORIDE [Concomitant]
  7. SPIRONOLACTONE [Concomitant]
  8. GLIPIZIDE [Concomitant]
  9. FUROSEMIDE [Concomitant]
  10. NICOTINE [Concomitant]
  11. TYLENOL (CAPLET) [Concomitant]
     Indication: SLEEP DISORDER
  12. TYLENOL [Concomitant]
     Indication: HEADACHE
  13. VITAMINS [Concomitant]
  14. ALL OTHER THERAPEUTIC PRODUCTS [Concomitant]
     Indication: BIPOLAR DISORDER

REACTIONS (8)
  - AGGRESSION [None]
  - ANGER [None]
  - ANXIETY [None]
  - DEAFNESS BILATERAL [None]
  - DIABETES MELLITUS INADEQUATE CONTROL [None]
  - FRUSTRATION [None]
  - MENTAL DISORDER [None]
  - MYOCARDIAL INFARCTION [None]
